FAERS Safety Report 16284640 (Version 1)
Quarter: 2019Q2

REPORT INFORMATION
  Report Type: Spontaneous
  Country: FR (occurrence: FR)
  Receive Date: 20190508
  Receipt Date: 20190508
  Transmission Date: 20190711
  Serious: Yes (Life-Threatening)
  Sender: FDA-Public Use
  Company Number: FR-TEVA-2019-FR-1046463

PATIENT
  Age: 71 Year
  Sex: Female
  Weight: 100 kg

DRUGS (2)
  1. BISOPROLOL (FUMARATE DE) [Suspect]
     Active Substance: BISOPROLOL FUMARATE
     Indication: ATRIAL FIBRILLATION
     Dosage: 10 MILLIGRAM DAILY;
     Route: 048
  2. DIGOXINE NATIVELLE 0,25 MG, COMPRIM? [Suspect]
     Active Substance: DIGOXIN
     Indication: ATRIAL FIBRILLATION
     Dosage: .25 MILLIGRAM DAILY;
     Route: 048

REACTIONS (4)
  - Bradycardia [Recovered/Resolved]
  - Vomiting [Recovered/Resolved]
  - Decreased appetite [Recovered/Resolved]
  - Dyschromatopsia [Recovered/Resolved]

NARRATIVE: CASE EVENT DATE: 20190315
